FAERS Safety Report 4393997-X (Version None)
Quarter: 2004Q3

REPORT INFORMATION
  Report Type: 
  Country: None (occurrence: None)
  Receive Date: 20040709
  Receipt Date: 20040701
  Transmission Date: 20050211
  Serious: Yes (Other)
  Sender: FDA-Public Use
  Company Number: JP-MERCK-0407USA00376

PATIENT
  Age: 60 Year
  Sex: Male

DRUGS (3)
  1. FLUTICASONE PROPIONATE [Concomitant]
     Route: 055
     Dates: start: 20040414
  2. SINGULAIR [Suspect]
     Indication: ASTHMA
     Route: 048
     Dates: start: 20040414, end: 20040609
  3. SEREVENT [Concomitant]
     Route: 055
     Dates: start: 20040414

REACTIONS (1)
  - HEPATIC FUNCTION ABNORMAL [None]
